FAERS Safety Report 8339250-0 (Version None)
Quarter: 2012Q2

REPORT INFORMATION
  Report Type: 
  Country: None (occurrence: None)
  Receive Date: 20120507
  Receipt Date: 20120423
  Transmission Date: 20120825
  Serious: Yes (Hospitalization, Other)
  Sender: FDA-Public Use
  Company Number: BR-JNJFOC-20120412676

PATIENT
  Sex: Female
  Weight: 62.4 kg

DRUGS (13)
  1. RISPERDAL [Suspect]
     Indication: PRODUCT USED FOR UNKNOWN INDICATION
     Route: 065
     Dates: start: 20120330
  2. GLUCOFORM [Concomitant]
     Route: 065
  3. LEVOTHYROXINE SODIUM [Concomitant]
     Route: 065
  4. BISACODYL [Concomitant]
     Route: 065
  5. LASIX [Concomitant]
     Route: 065
  6. PANTOPRAZOLE [Concomitant]
     Route: 065
  7. LEXAPRO [Concomitant]
     Route: 065
  8. METICORTEN [Concomitant]
     Route: 065
  9. CODEINE SUL TAB [Suspect]
     Indication: PRODUCT USED FOR UNKNOWN INDICATION
     Dosage: 3MG/ML
     Route: 065
  10. ASPIRIN [Concomitant]
     Route: 065
  11. DIOVAN [Concomitant]
     Route: 065
  12. PRAMIPEXOLE DIHYDROCHLORIDE [Suspect]
     Indication: PRODUCT USED FOR UNKNOWN INDICATION
     Route: 065
  13. ENOXAPARIN SODIUM [Concomitant]
     Route: 065

REACTIONS (7)
  - DEPRESSED LEVEL OF CONSCIOUSNESS [None]
  - TACHYCARDIA [None]
  - OXYGEN SATURATION ABNORMAL [None]
  - PULSE ABNORMAL [None]
  - BLOOD PRESSURE DECREASED [None]
  - SOMNOLENCE [None]
  - PSYCHOMOTOR HYPERACTIVITY [None]
